FAERS Safety Report 7031287-7 (Version None)
Quarter: 2010Q4

REPORT INFORMATION
  Report Type: 
  Country: None (occurrence: None)
  Receive Date: 20101006
  Receipt Date: 20100930
  Transmission Date: 20110411
  Serious: Yes (Other)
  Sender: FDA-Public Use
  Company Number: B0676396A

PATIENT
  Age: 31 Year
  Sex: Female
  Weight: 76 kg

DRUGS (2)
  1. ZANTAC [Suspect]
     Indication: PREOPERATIVE CARE
     Dosage: 1IUAX PER DAY
     Route: 042
     Dates: start: 20100803, end: 20100803
  2. GLUCOSE-ACETATED RINGER'S SOLUTION [Concomitant]
     Route: 042

REACTIONS (1)
  - ANAPHYLACTIC SHOCK [None]
